FAERS Safety Report 24180535 (Version 2)
Quarter: 2024Q4

REPORT INFORMATION
  Report Type: Spontaneous
  Country: US (occurrence: US)
  Receive Date: 20240806
  Receipt Date: 20241220
  Transmission Date: 20250115
  Serious: No
  Sender: BRISTOL-MYERS SQUIBB COMPANY
  Company Number: US-BRISTOL-MYERS SQUIBB COMPANY-2024-122144

PATIENT
  Age: 28 Year
  Sex: Female

DRUGS (2)
  1. THALOMID [Suspect]
     Active Substance: THALIDOMIDE
     Indication: Erythema nodosum
     Route: 048
  2. THALOMID [Suspect]
     Active Substance: THALIDOMIDE
     Indication: Leprosy

REACTIONS (3)
  - Dizziness [Unknown]
  - Headache [Unknown]
  - Nausea [Unknown]
